FAERS Safety Report 18422130 (Version 1)
Quarter: 2020Q4

REPORT INFORMATION
  Report Type: Spontaneous
  Country: JP (occurrence: JP)
  Receive Date: 20201023
  Receipt Date: 20201023
  Transmission Date: 20210114
  Serious: Yes (Death, Other)
  Sender: FDA-Public Use
  Company Number: JP-BRISTOL-MYERS SQUIBB COMPANY-BMS-2017-122648

PATIENT
  Age: 51 Year
  Sex: Male
  Weight: 71.9 kg

DRUGS (10)
  1. OPDIVO [Suspect]
     Active Substance: NIVOLUMAB
     Dosage: 219 MILLIGRAM, Q2WK
     Route: 041
     Dates: start: 20180316, end: 20180511
  2. OPDIVO [Suspect]
     Active Substance: NIVOLUMAB
     Dosage: 219 MILLIGRAM, Q4WK
     Route: 041
     Dates: start: 20180525, end: 20180622
  3. OPDIVO [Suspect]
     Active Substance: NIVOLUMAB
     Dosage: 219 MILLIGRAM, Q3WK
     Route: 041
     Dates: start: 20181109, end: 20181130
  4. OPDIVO [Suspect]
     Active Substance: NIVOLUMAB
     Dosage: 219 MILLIGRAM
     Route: 041
     Dates: start: 20181214, end: 20190125
  5. DECADRON (DEXAMETHASONE SODIUM PHOSPHATE) [Concomitant]
     Active Substance: DEXAMETHASONE SODIUM PHOSPHATE
     Indication: PRODUCT USED FOR UNKNOWN INDICATION
     Route: 065
  6. FYCOMPA [Concomitant]
     Active Substance: PERAMPANEL
     Indication: PRODUCT USED FOR UNKNOWN INDICATION
     Route: 065
  7. OPDIVO [Suspect]
     Active Substance: NIVOLUMAB
     Dosage: 219 MILLIGRAM, Q2WK
     Route: 041
     Dates: start: 20180706, end: 20181026
  8. OPDIVO [Suspect]
     Active Substance: NIVOLUMAB
     Indication: METASTATIC RENAL CELL CARCINOMA
     Dosage: 219 MILLIGRAM, Q2WK
     Route: 041
     Dates: start: 20170414, end: 20180119
  9. OPDIVO [Suspect]
     Active Substance: NIVOLUMAB
     Dosage: 219 MILLIGRAM, Q4WK
     Route: 041
     Dates: start: 20180202, end: 20180302
  10. OPDIVO [Suspect]
     Active Substance: NIVOLUMAB
     Dosage: 219 MILLIGRAM, Q2WK
     Route: 041
     Dates: start: 20190208

REACTIONS (1)
  - Death [Fatal]
